FAERS Safety Report 16134380 (Version 1)
Quarter: 2019Q1

REPORT INFORMATION
  Report Type: Spontaneous
  Country: US (occurrence: US)
  Receive Date: 20190329
  Receipt Date: 20190329
  Transmission Date: 20190418
  Serious: No
  Sender: FDA-Public Use
  Company Number: US-TEVA-2019-US-1021296

PATIENT
  Sex: Female

DRUGS (2)
  1. BUPRENORPHINE TRANSDERMAL PATCH [Suspect]
     Active Substance: BUPRENORPHINE
     Dosage: DOSE STRENGTH: 10 MCG/HR
     Route: 061
  2. ALCOHOL. [Concomitant]
     Active Substance: ALCOHOL
     Route: 061

REACTIONS (3)
  - Rash [Unknown]
  - Product quality issue [Unknown]
  - Pruritus [Unknown]
